FAERS Safety Report 20734073 (Version 2)
Quarter: 2022Q3

REPORT INFORMATION
  Report Type: Spontaneous
  Country: US (occurrence: US)
  Receive Date: 20220421
  Receipt Date: 20220707
  Transmission Date: 20221026
  Serious: Yes (Other)
  Sender: FDA-Public Use
  Company Number: US-BRISTOL-MYERS SQUIBB COMPANY-2022-020523

PATIENT
  Age: 79 Year
  Sex: Male

DRUGS (4)
  1. REVLIMID [Suspect]
     Active Substance: LENALIDOMIDE
     Indication: Product used for unknown indication
     Route: 048
  2. REVLIMID [Suspect]
     Active Substance: LENALIDOMIDE
     Route: 048
     Dates: start: 202205
  3. REVLIMID [Suspect]
     Active Substance: LENALIDOMIDE
     Route: 048
     Dates: start: 2022
  4. DARZALEX [Concomitant]
     Active Substance: DARATUMUMAB
     Indication: Product used for unknown indication
     Route: 065

REACTIONS (4)
  - Neoplasm malignant [Unknown]
  - Dizziness [Unknown]
  - Fatigue [Unknown]
  - Somnolence [Unknown]

NARRATIVE: CASE EVENT DATE: 20220325
